FAERS Safety Report 7659283-7 (Version None)
Quarter: 2011Q3

REPORT INFORMATION
  Report Type: 
  Country: None (occurrence: None)
  Receive Date: 20110805
  Receipt Date: 20110729
  Transmission Date: 20111222
  Serious: Yes (Hospitalization)
  Sender: FDA-Public Use
  Company Number: FR-ROCHE-764308

PATIENT
  Sex: Female
  Weight: 65 kg

DRUGS (2)
  1. INTERFERON [Concomitant]
     Indication: RENAL CANCER
     Route: 058
     Dates: start: 20100601, end: 20100901
  2. AVASTIN [Suspect]
     Indication: RENAL CANCER METASTATIC
     Route: 042
     Dates: start: 20100617, end: 20100902

REACTIONS (1)
  - RENAL FAILURE [None]
